FAERS Safety Report 18295542 (Version 1)
Quarter: 2020Q3

REPORT INFORMATION
  Report Type: Spontaneous
  Country: US (occurrence: US)
  Receive Date: 20200922
  Receipt Date: 20200922
  Transmission Date: 20201103
  Serious: Yes (Other)
  Sender: FDA-Public Use
  Company Number: US-ROCHE-2680813

PATIENT
  Age: 17 Month
  Sex: Female

DRUGS (1)
  1. RITUXAN [Suspect]
     Active Substance: RITUXIMAB
     Indication: OPSOCLONUS MYOCLONUS
     Route: 065

REACTIONS (3)
  - Intentional product use issue [Unknown]
  - Opsoclonus myoclonus [Unknown]
  - Off label use [Unknown]
